FAERS Safety Report 22650603 (Version 1)
Quarter: 2023Q2

REPORT INFORMATION
  Report Type: Spontaneous
  Country: US (occurrence: None)
  Receive Date: 20230627
  Receipt Date: 20230627
  Transmission Date: 20230721
  Serious: Yes (Hospitalization)
  Sender: FDA-Public Use
  Company Number: None

PATIENT
  Age: 74 Year
  Sex: Male

DRUGS (1)
  1. ERLEADA [Suspect]
     Active Substance: APALUTAMIDE
     Indication: Prostate cancer
     Dosage: 240MG DAILY ORAL
     Route: 048
     Dates: start: 202303, end: 20230623

REACTIONS (5)
  - Rash [None]
  - Paranasal sinus inflammation [None]
  - Stomatitis [None]
  - Eating disorder [None]
  - Therapy interrupted [None]

NARRATIVE: CASE EVENT DATE: 20230616
